FAERS Safety Report 9326353 (Version 1)
Quarter: 2013Q2

REPORT INFORMATION
  Report Type: Report from Study
  Country: IL (occurrence: IL)
  Receive Date: 20130604
  Receipt Date: 20130604
  Transmission Date: 20140414
  Serious: Yes (Death, Hospitalization, Disabling)
  Sender: FDA-Public Use
  Company Number: IL-ROCHE-711375

PATIENT
  Age: 51 Year
  Sex: Male
  Weight: 80 kg

DRUGS (2)
  1. PEG-INTERFERON ALFA 2A [Suspect]
     Indication: HEPATITIS C
     Dosage: LAST DOSE PRIOR TO SAE: 25 JAN 2010.
     Route: 058
     Dates: start: 20090404, end: 20100201
  2. RIBAVIRIN [Suspect]
     Indication: HEPATITIS C
     Dosage: DOSE PRIOR TO SAE: 30 JAN 2010. FREQUENCY REPORTED AS 1/D.
     Route: 048
     Dates: start: 20090404, end: 20100201

REACTIONS (3)
  - Pancreatic neoplasm [Fatal]
  - Pancreatitis acute [Not Recovered/Not Resolved]
  - Jaundice cholestatic [Not Recovered/Not Resolved]
